FAERS Safety Report 5143608-0 (Version None)
Quarter: 2006Q4

REPORT INFORMATION
  Report Type: 
  Country: None (occurrence: None)
  Receive Date: 20061030
  Receipt Date: 20060821
  Transmission Date: 20070319
  Serious: Yes (Death, Other)
  Sender: FDA-Public Use
  Company Number: 2006105788

PATIENT
  Sex: Male

DRUGS (1)
  1. BEXTRA [Suspect]
     Dates: start: 20041001, end: 20050301

REACTIONS (1)
  - MYOCARDIAL INFARCTION [None]
